FAERS Safety Report 5579508-1 (Version None)
Quarter: 2007Q4

REPORT INFORMATION
  Report Type: 
  Country: None (occurrence: None)
  Receive Date: 20071130
  Receipt Date: 20070703
  Transmission Date: 20080405
  Serious: No
  Sender: FDA-Public Use
  Company Number: US200707001836

PATIENT
  Age: 42 Year
  Sex: Female
  Weight: 85.3 kg

DRUGS (1)
  1. BYETTA [Suspect]
     Indication: INSULIN RESISTANT DIABETES
     Dosage: 5 UG, 2/D, SUBCUTANEOUS ; 10 UG, 2/D, SUBCUTANEOUS
     Route: 058
     Dates: start: 20061001

REACTIONS (3)
  - DRUG EFFECT DECREASED [None]
  - THYROID DISORDER [None]
  - WEIGHT INCREASED [None]
